FAERS Safety Report 5514569-7 (Version None)
Quarter: 2007Q4

REPORT INFORMATION
  Report Type: 
  Country: None (occurrence: None)
  Receive Date: 20071113
  Receipt Date: 20071108
  Transmission Date: 20080405
  Serious: Yes (Hospitalization)
  Sender: FDA-Public Use
  Company Number: B0487068A

PATIENT
  Age: 84 Year
  Sex: Male
  Weight: 50 kg

DRUGS (9)
  1. ARIXTRA [Suspect]
     Indication: THROMBOSIS PROPHYLAXIS
     Dosage: 2.5MG PER DAY
     Route: 058
     Dates: start: 20070825, end: 20070905
  2. NORVASC [Concomitant]
     Dosage: 5MG PER DAY
     Route: 048
     Dates: start: 20070822
  3. LOXONIN [Concomitant]
     Dosage: 60MG THREE TIMES PER DAY
     Route: 048
     Dates: start: 20070820, end: 20070822
  4. MICARDIS [Concomitant]
     Dosage: 40MG PER DAY
     Route: 048
     Dates: start: 20070822
  5. SELBEX [Concomitant]
     Dosage: 50MG THREE TIMES PER DAY
     Route: 048
     Dates: start: 20070820, end: 20070822
  6. NEUROTROPIN [Concomitant]
     Route: 042
     Dates: start: 20070820, end: 20070822
  7. FLUMARIN [Concomitant]
     Route: 042
     Dates: start: 20070823, end: 20070912
  8. UNKNOWN MEDICATION [Concomitant]
     Route: 042
     Dates: start: 20070823, end: 20070824
  9. ALTAT [Concomitant]
     Route: 042
     Dates: start: 20070823, end: 20070823

REACTIONS (1)
  - HAEMATEMESIS [None]
